FAERS Safety Report 25564596 (Version 1)
Quarter: 2025Q3

REPORT INFORMATION
  Report Type: Spontaneous
  Country: US (occurrence: US)
  Receive Date: 20250716
  Receipt Date: 20250716
  Transmission Date: 20251021
  Serious: No
  Sender: RANBAXY
  Company Number: US-MIMS-SUN-2025-USA-54328

PATIENT
  Sex: Male

DRUGS (1)
  1. MAGNESIUM\POTASSIUM\SODIUM [Suspect]
     Active Substance: MAGNESIUM\POTASSIUM\SODIUM
     Indication: Product used for unknown indication
     Route: 065

REACTIONS (1)
  - Accidental overdose [Unknown]
